FAERS Safety Report 7014152-0 (Version None)
Quarter: 2010Q3

REPORT INFORMATION
  Report Type: 
  Country: None (occurrence: None)
  Receive Date: 20100927
  Receipt Date: 20100913
  Transmission Date: 20110219
  Serious: Yes (Other)
  Sender: FDA-Public Use
  Company Number: JP-JNJFOC-20100204680

PATIENT
  Sex: Female
  Weight: 82 kg

DRUGS (3)
  1. DOXORUBICIN HCL [Suspect]
     Indication: OVARIAN CANCER RECURRENT
     Dosage: CYCLE 2
     Route: 042
  2. DOXORUBICIN HCL [Suspect]
     Dosage: CYCLE 3
     Route: 042
  3. DOXORUBICIN HCL [Suspect]
     Dosage: CYCLE 1
     Route: 042

REACTIONS (1)
  - HAND-FOOT-AND-MOUTH DISEASE [None]
